FAERS Safety Report 7874769-8 (Version None)
Quarter: 2011Q4

REPORT INFORMATION
  Report Type: 
  Country: None (occurrence: None)
  Receive Date: 20111014
  Receipt Date: 20101220
  Transmission Date: 20120403
  Serious: Yes (Other)
  Sender: FDA-Public Use
  Company Number: 1000017836

PATIENT
  Age: 44 Year
  Sex: Female

DRUGS (14)
  1. DIAZEPAM [Concomitant]
  2. KLONOPIN [Concomitant]
  3. ATIVAN [Concomitant]
  4. LIDODERM (LIDOCAINE) (POULTICE OR PATCH) (LIDOCAINE) [Concomitant]
  5. PARAFON FORTE (CHLORZOXAZONE) (CHLORZOXAZONE) [Concomitant]
  6. RELAFEN (NABUMETONE) (NABUMETONE) [Concomitant]
  7. MORPHINE SULFATE [Concomitant]
  8. VICODIN ER (HYDROCODONE, ACETAMINOPHEN) (HYDROCODONE, ACETAMINOPHEN) [Concomitant]
  9. LEXAPRO [Suspect]
     Dosage: ORAL
     Route: 048
  10. NEURONTIN [Suspect]
     Dosage: ORAL
     Route: 048
  11. SOMA (CARISOPRODOL) (CARISOPRODOL) [Concomitant]
  12. ZANAFLEX (TIZANIDINE HYDROCHLORIDE) (TIZANIDINE HYDROCHLORIDE) [Concomitant]
  13. PHENERGAN (PROMETHAZINE) (PROMETHAZINE) [Concomitant]
  14. OXYCONTIN (OXYCODONE HYDROCHLORIDE) (OXYCODONE HYDROCHLORIDE) [Concomitant]

REACTIONS (1)
  - OVERDOSE [None]
